FAERS Safety Report 16661530 (Version 1)
Quarter: 2019Q3

REPORT INFORMATION
  Report Type: Spontaneous
  Country: US (occurrence: US)
  Receive Date: 20190802
  Receipt Date: 20190802
  Transmission Date: 20191004
  Serious: Yes (Other)
  Sender: FDA-Public Use
  Company Number: US-FRESENIUS KABI-FK201908474

PATIENT
  Age: 31 Year
  Sex: Female

DRUGS (5)
  1. PREDNISONE. [Suspect]
     Active Substance: PREDNISONE
     Indication: ALOPECIA AREATA
     Dosage: TAPERING DOSES
  2. INTERLEUKINS [Concomitant]
     Active Substance: INTERLEUKIN NOS
     Indication: ALOPECIA AREATA
     Route: 023
  3. METHOTREXATE (MANUFACTURER UNKNOWN) [Suspect]
     Active Substance: METHOTREXATE
     Indication: ALOPECIA AREATA
     Route: 065
  4. PYRIDOXINE [Suspect]
     Active Substance: PYRIDOXINE
     Indication: LATENT TUBERCULOSIS
  5. ISONIAZID. [Suspect]
     Active Substance: ISONIAZID
     Indication: LATENT TUBERCULOSIS

REACTIONS (2)
  - Hepatic failure [Recovered/Resolved]
  - Liver injury [Recovered/Resolved]
